FAERS Safety Report 16613413 (Version 1)
Quarter: 2019Q3

REPORT INFORMATION
  Report Type: Spontaneous
  Country: US (occurrence: US)
  Receive Date: 20190723
  Receipt Date: 20190723
  Transmission Date: 20191004
  Serious: Yes (Other)
  Sender: FDA-Public Use
  Company Number: US-HETERO-HET2019US00986

PATIENT
  Age: 14 Year
  Sex: Male

DRUGS (7)
  1. BUPROPION. [Concomitant]
     Active Substance: BUPROPION
     Indication: PRODUCT USED FOR UNKNOWN INDICATION
     Dosage: 150 MG, QD
     Route: 065
  2. LITHIUM. [Suspect]
     Active Substance: LITHIUM
     Indication: MENTAL DISORDER
     Dosage: 450 MG, TID
     Route: 065
  3. LEVOTHYROXINE. [Concomitant]
     Active Substance: LEVOTHYROXINE
     Indication: HYPOTHYROIDISM
  4. CLONIDINE. [Concomitant]
     Active Substance: CLONIDINE
     Indication: PRODUCT USED FOR UNKNOWN INDICATION
     Dosage: 0.1 MG, TID
     Route: 065
  5. QUETIAPINE. [Concomitant]
     Active Substance: QUETIAPINE
     Indication: PRODUCT USED FOR UNKNOWN INDICATION
     Dosage: 200 MG, BID
     Route: 065
  6. LITHIUM. [Suspect]
     Active Substance: LITHIUM
     Dosage: 450 MG, BID
     Route: 065
  7. GUANFACINE. [Concomitant]
     Active Substance: GUANFACINE
     Indication: PRODUCT USED FOR UNKNOWN INDICATION
     Dosage: 4 MG, QD
     Route: 065

REACTIONS (2)
  - Renal tubular disorder [Unknown]
  - Chronic kidney disease [Unknown]
